FAERS Safety Report 5588172-7 (Version None)
Quarter: 2008Q1

REPORT INFORMATION
  Report Type: 
  Country: None (occurrence: None)
  Receive Date: 20080109
  Receipt Date: 20080109
  Transmission Date: 20080703
  Serious: Yes (Other)
  Sender: FDA-Public Use
  Company Number: None

PATIENT
  Sex: Male
  Weight: 82.07 kg

DRUGS (1)
  1. PROLEUKIN [Suspect]

REACTIONS (8)
  - CHILLS [None]
  - DIARRHOEA [None]
  - EYE SWELLING [None]
  - PHARYNGEAL OEDEMA [None]
  - RASH ERYTHEMATOUS [None]
  - RASH PRURITIC [None]
  - SWOLLEN TONGUE [None]
  - TACHYCARDIA [None]
